FAERS Safety Report 22868685 (Version 3)
Quarter: 2023Q4

REPORT INFORMATION
  Report Type: Spontaneous
  Country: FR (occurrence: FR)
  Receive Date: 20230825
  Receipt Date: 20231128
  Transmission Date: 20240110
  Serious: Yes (Hospitalization, Other)
  Sender: FDA-Public Use
  Company Number: None

PATIENT
  Age: 30 Year
  Sex: Female

DRUGS (4)
  1. KEYTRUDA [Suspect]
     Active Substance: PEMBROLIZUMAB
     Indication: Breast cancer
     Dosage: 1 DOSAGE FORM, ONCE
     Route: 042
     Dates: start: 20230711, end: 20230711
  2. CARBOPLATIN [Suspect]
     Active Substance: CARBOPLATIN
     Indication: Breast cancer
     Dosage: 1 DOSAGE FORM, ONCE
     Route: 042
     Dates: start: 20230711, end: 20230711
  3. PACLITAXEL [Suspect]
     Active Substance: PACLITAXEL
     Indication: Breast cancer
     Dosage: 1 DOSAGE FORM, ONCE
     Route: 042
     Dates: start: 20230711, end: 20230711
  4. CIPROFLOXACIN HYDROCHLORIDE [Suspect]
     Active Substance: CIPROFLOXACIN HYDROCHLORIDE
     Indication: Urinary tract infection
     Dosage: 2 DOSAGE FORM, QD
     Route: 048
     Dates: start: 20230715, end: 20230719

REACTIONS (3)
  - Rash [Recovering/Resolving]
  - Skin necrosis [Recovering/Resolving]
  - Vascular purpura [Recovering/Resolving]

NARRATIVE: CASE EVENT DATE: 20230718
